FAERS Safety Report 5278426-6 (Version None)
Quarter: 2007Q1

REPORT INFORMATION
  Report Type: 
  Country: None (occurrence: None)
  Receive Date: 20070322
  Receipt Date: 20070309
  Transmission Date: 20070707
  Serious: Yes (Life-Threatening, Hospitalization)
  Sender: FDA-Public Use
  Company Number: 235033

PATIENT
  Age: 72 Year
  Sex: Female
  Weight: 102.7 kg

DRUGS (17)
  1. RITUXAN [Suspect]
     Indication: RHEUMATOID ARTHRITIS
     Dosage: 1000 MG, DAYS 1+15, INTRAVENOUS
     Route: 042
     Dates: start: 20060905
  2. ALTACE [Concomitant]
  3. TOPROL-XL [Concomitant]
  4. NORVASC [Concomitant]
  5. METHOTREXATE [Concomitant]
  6. FOLATE (FOLATE SODIUM) [Concomitant]
  7. GLIPIZIDE [Concomitant]
  8. METFORMIN HCL [Concomitant]
  9. LIPITOR [Concomitant]
  10. DETROL LA (TOLTERODINE TARTRATE) [Concomitant]
  11. WELLBUTRIN SR [Concomitant]
  12. LORAZEPAM [Concomitant]
  13. IRON (IRON NOS) [Concomitant]
  14. PLAVIX [Concomitant]
  15. NITROGLYCERIN [Concomitant]
  16. NEXIUM [Concomitant]
  17. FLUTICASONE (FLUTICASONE PROPIONATE) [Concomitant]

REACTIONS (3)
  - ACUTE MYOCARDIAL INFARCTION [None]
  - BLOOD GLUCOSE INCREASED [None]
  - CORONARY ARTERY OCCLUSION [None]
